FAERS Safety Report 12422359 (Version 1)
Quarter: 2016Q2

REPORT INFORMATION
  Report Type: Report from Study
  Country: CA (occurrence: CA)
  Receive Date: 20160601
  Receipt Date: 20160601
  Transmission Date: 20160815
  Serious: Yes (Hospitalization, Other)
  Sender: FDA-Public Use
  Company Number: CA-ROCHE-1250000

PATIENT
  Age: 66 Year
  Sex: Male

DRUGS (17)
  1. SOLU-MEDROL [Suspect]
     Active Substance: METHYLPREDNISOLONE SODIUM SUCCINATE
     Indication: PREMEDICATION
     Route: 042
     Dates: start: 20130715
  2. BABY ASPIRIN [Concomitant]
     Active Substance: ASPIRIN
  3. RITUXAN [Suspect]
     Active Substance: RITUXIMAB
     Indication: VASCULITIS
  4. AMLODINE [Concomitant]
     Active Substance: AMLODIPINE BESYLATE
  5. SYMBICORT [Concomitant]
     Active Substance: BUDESONIDE\FORMOTEROL FUMARATE DIHYDRATE
  6. SPIRIVA [Concomitant]
     Active Substance: TIOTROPIUM BROMIDE MONOHYDRATE
  7. DILTIAZEM [Concomitant]
     Active Substance: DILTIAZEM
     Indication: BLOOD PRESSURE MEASUREMENT
  8. RITUXAN [Suspect]
     Active Substance: RITUXIMAB
     Indication: GRANULOMATOSIS WITH POLYANGIITIS
     Dosage: LAST DOSE TAKEN: 09/DEC/2015
     Route: 042
     Dates: start: 20130715
  9. TYLENOL [Concomitant]
     Active Substance: ACETAMINOPHEN
     Indication: PREMEDICATION
     Route: 048
     Dates: start: 20130715
  10. PREDNISONE. [Concomitant]
     Active Substance: PREDNISONE
  11. ULTIBRO [Concomitant]
     Active Substance: GLYCOPYRRONIUM\INDACATEROL
     Indication: CHRONIC OBSTRUCTIVE PULMONARY DISEASE
  12. RAMIPRIL. [Concomitant]
     Active Substance: RAMIPRIL
  13. INDAPAMIDE. [Concomitant]
     Active Substance: INDAPAMIDE
  14. CRESTOR [Concomitant]
     Active Substance: ROSUVASTATIN CALCIUM
  15. BENADRYL [Concomitant]
     Active Substance: DIPHENHYDRAMINE HYDROCHLORIDE
     Indication: PREMEDICATION
     Route: 048
     Dates: start: 20130715
  16. INSULIN [Concomitant]
     Active Substance: INSULIN NOS
  17. VITAMIN B12 [Concomitant]
     Active Substance: CYANOCOBALAMIN

REACTIONS (7)
  - Internal haemorrhage [Recovered/Resolved]
  - Vasculitis [Unknown]
  - Dizziness [Recovered/Resolved]
  - Circulatory collapse [Unknown]
  - Heart rate irregular [Not Recovered/Not Resolved]
  - Blood pressure increased [Unknown]
  - Blood glucose increased [Unknown]

NARRATIVE: CASE EVENT DATE: 20130715
